FAERS Safety Report 18666298 (Version 1)
Quarter: 2020Q4

REPORT INFORMATION
  Report Type: Spontaneous
  Country: LV (occurrence: LV)
  Receive Date: 20201226
  Receipt Date: 20201226
  Transmission Date: 20210114
  Serious: Yes (Other)
  Sender: FDA-Public Use
  Company Number: NVSC2020LV338005

PATIENT
  Age: 70 Year
  Sex: Female

DRUGS (1)
  1. AIRBUFO FORSPIRO 160 MIKROG/4,5 MIKROG/DOS, INHALATIONSPULVER, AVDELAD [Suspect]
     Active Substance: BUDESONIDE\FORMOTEROL FUMARATE
     Indication: ASTHMA
     Dosage: UNK UNK, Q12H
     Route: 055
     Dates: start: 20200727, end: 20201208

REACTIONS (4)
  - Dyspnoea [Recovering/Resolving]
  - Therapeutic product effect decreased [Recovering/Resolving]
  - Tachycardia [Recovering/Resolving]
  - Palpitations [Recovering/Resolving]

NARRATIVE: CASE EVENT DATE: 202008
